FAERS Safety Report 7674941-6 (Version None)
Quarter: 2011Q3

REPORT INFORMATION
  Report Type: 
  Country: None (occurrence: None)
  Receive Date: 20110810
  Receipt Date: 20110808
  Transmission Date: 20111222
  Serious: Yes (Life-Threatening, Hospitalization)
  Sender: FDA-Public Use
  Company Number: GXKR2010GB03935

PATIENT
  Age: 77 Year
  Sex: Female

DRUGS (6)
  1. VANCOMYCIN [Suspect]
     Indication: WOUND INFECTION
     Dosage: 1 G, BID
     Route: 042
  2. ATENOLOL [Concomitant]
  3. OPIOIDS [Concomitant]
     Indication: PAIN
  4. RAMIPRIL [Concomitant]
  5. FUROSEMIDE [Suspect]
     Indication: OEDEMA PERIPHERAL
     Dosage: 20 MG, UNK
     Route: 048
  6. BENDROFLUMETHIAZIDE [Concomitant]

REACTIONS (4)
  - HYPOKALAEMIA [None]
  - HYPOMAGNESAEMIA [None]
  - CARDIAC ARREST [None]
  - VENTRICULAR TACHYCARDIA [None]
